FAERS Safety Report 5067080-4 (Version None)
Quarter: 2006Q3

REPORT INFORMATION
  Report Type: 
  Country: None (occurrence: None)
  Receive Date: 20060727
  Receipt Date: 20060712
  Transmission Date: 20061208
  Serious: Yes (Other)
  Sender: FDA-Public Use
  Company Number: 2006090153

PATIENT
  Age: 40 Year
  Sex: Female

DRUGS (1)
  1. BEXTRA [Suspect]
     Indication: PAIN
     Dosage: 60 MG (20 MG, 3 IN 1 D)
     Dates: start: 20030712

REACTIONS (6)
  - CARDIAC DISORDER [None]
  - CHEST PAIN [None]
  - HEART RATE ABNORMAL [None]
  - HYPERTENSION [None]
  - HYPOAESTHESIA [None]
  - PALPITATIONS [None]
